FAERS Safety Report 9393678 (Version 1)
Quarter: 2013Q3

REPORT INFORMATION
  Report Type: Spontaneous
  Country: US (occurrence: US)
  Receive Date: 20130710
  Receipt Date: 20130710
  Transmission Date: 20140515
  Serious: No
  Sender: FDA-Public Use
  Company Number: US-BAYER-2013-083296

PATIENT
  Age: 38 Year
  Sex: Female

DRUGS (2)
  1. MIRENA [Suspect]
     Indication: CONTRACEPTION
     Dosage: 20 MCG/24HR, CONT
     Route: 015
     Dates: start: 2011
  2. CORTISONE [Interacting]
     Indication: SPINAL COLUMN INJURY
     Dosage: UNK
     Dates: start: 20130307

REACTIONS (1)
  - Drug interaction [Not Recovered/Not Resolved]
